FAERS Safety Report 17138945 (Version 1)
Quarter: 2019Q4

REPORT INFORMATION
  Report Type: Spontaneous
  Country: US (occurrence: US)
  Receive Date: 20191211
  Receipt Date: 20191211
  Transmission Date: 20200122
  Serious: No
  Sender: FDA-Public Use
  Company Number: US-UCBSA-2016019285

PATIENT
  Age: 0 Year
  Sex: Female
  Weight: 3 kg

DRUGS (5)
  1. CIMZIA [Suspect]
     Active Substance: CERTOLIZUMAB PEGOL
     Indication: CROHN^S DISEASE
     Dosage: 400 MG, EV 4 WEEKS
     Route: 064
     Dates: start: 20150612, end: 20160219
  2. CIMZIA [Suspect]
     Active Substance: CERTOLIZUMAB PEGOL
     Dosage: 400 MG, UNK
     Route: 063
     Dates: start: 201602, end: 20160422
  3. NYSTATIN. [Concomitant]
     Active Substance: NYSTATIN
     Indication: PRODUCT USED FOR UNKNOWN INDICATION
  4. RANITIDINE. [Concomitant]
     Active Substance: RANITIDINE
     Indication: PRODUCT USED FOR UNKNOWN INDICATION
  5. TYLENOL [Concomitant]
     Active Substance: ACETAMINOPHEN
     Indication: PRODUCT USED FOR UNKNOWN INDICATION
     Dosage: 15 MG/ML
     Route: 048

REACTIONS (16)
  - Irritability [Unknown]
  - Abnormal faeces [Recovered/Resolved]
  - Cough [Unknown]
  - Weight gain poor [Not Recovered/Not Resolved]
  - Jaundice neonatal [Recovered/Resolved]
  - Abdominal discomfort [Recovered/Resolved]
  - Maternal exposure during pregnancy [Unknown]
  - Crying [Recovered/Resolved]
  - Vomiting [Not Recovered/Not Resolved]
  - Diarrhoea [Unknown]
  - Constipation [Unknown]
  - Rash [Unknown]
  - Gastrooesophageal reflux disease [Recovering/Resolving]
  - Insomnia [Recovered/Resolved]
  - Exposure via breast milk [Unknown]
  - Abdominal pain [Unknown]

NARRATIVE: CASE EVENT DATE: 2016
